FAERS Safety Report 9968104 (Version 1)
Quarter: 2014Q1

REPORT INFORMATION
  Report Type: Report from Study
  Country: US (occurrence: US)
  Receive Date: 20140306
  Receipt Date: 20140306
  Transmission Date: 20141002
  Serious: No
  Sender: FDA-Public Use
  Company Number: US-ABBVIE-13P-163-1144590-00

PATIENT
  Age: 53 Year
  Sex: Female

DRUGS (4)
  1. HUMIRA [Suspect]
     Indication: PSORIASIS
     Dosage: ON DAY 1
     Dates: start: 20130828
  2. HUMIRA [Suspect]
     Dosage: ON DAY 8
     Dates: start: 201309
  3. ALLERGY MEDICATION [Concomitant]
     Indication: SEASONAL ALLERGY
  4. BENADRYL [Concomitant]
     Indication: SEASONAL ALLERGY

REACTIONS (4)
  - Injection site erythema [Not Recovered/Not Resolved]
  - Injection site erythema [Not Recovered/Not Resolved]
  - Injection site pruritus [Not Recovered/Not Resolved]
  - Injection site erythema [Not Recovered/Not Resolved]
